FAERS Safety Report 5563265-9 (Version None)
Quarter: 2007Q4

REPORT INFORMATION
  Report Type: 
  Country: None (occurrence: None)
  Receive Date: 20071212
  Receipt Date: 20071206
  Transmission Date: 20080405
  Serious: Yes (Other)
  Sender: FDA-Public Use
  Company Number: 2007337063

PATIENT
  Age: 40 Year
  Sex: Female
  Weight: 56.7 kg

DRUGS (3)
  1. LISTERINE WHITENING QUICK DISSOLVING STRIPS (NO ACTIVE INGREDIENT) [Suspect]
     Indication: DENTAL CARE
     Dosage: 1 STRIP EACH DAY (1 IN 1 D), ORAL
     Route: 048
     Dates: start: 20071201, end: 20071203
  2. DYAZIDE [Concomitant]
  3. NORVASC [Concomitant]

REACTIONS (4)
  - CAUSTIC INJURY [None]
  - LIP SWELLING [None]
  - ORAL MUCOSAL BLISTERING [None]
  - PAIN [None]
